FAERS Safety Report 9349367 (Version 2)
Quarter: 2014Q3

REPORT INFORMATION
  Report Type: Report from Study
  Country: JP (occurrence: JP)
  Receive Date: 20130614
  Receipt Date: 20140710
  Transmission Date: 20150326
  Serious: Yes (Other)
  Sender: FDA-Public Use
  Company Number: JP-009507513-1305JPN005816

PATIENT
  Age: 32 Year
  Sex: Female
  Weight: 51 kg

DRUGS (10)
  1. FOLLISTIM [Suspect]
     Active Substance: FOLLITROPIN
     Dosage: 225 UNDER 1000 UNIT, QD
     Route: 058
     Dates: start: 20100604, end: 20100608
  2. ESTRADIOL VALERATE. [Concomitant]
     Active Substance: ESTRADIOL VALERATE
     Indication: IN VITRO FERTILISATION
     Dosage: 6 MG 1 DAY
     Route: 048
     Dates: start: 20100804, end: 20100816
  3. VITAMIN E [Concomitant]
     Active Substance: .ALPHA.-TOCOPHEROL
     Indication: IN VITRO FERTILISATION
     Dosage: 150 MG 1 DAY
     Route: 048
     Dates: start: 20100804, end: 20100816
  4. DACTIL [Concomitant]
     Indication: IN VITRO FERTILISATION
     Dosage: 150 MG 1 DAY
     Route: 048
     Dates: start: 20100804, end: 20100816
  5. FOLLISTIM [Suspect]
     Active Substance: FOLLITROPIN
     Dosage: 150 UNDER 1000 UNIT, QD
     Route: 058
     Dates: start: 20100602, end: 20100603
  6. BRICANYL [Concomitant]
     Active Substance: TERBUTALINE SULFATE
     Indication: IN VITRO FERTILISATION
     Dosage: 6 MG 1 DAY
     Route: 048
     Dates: start: 20100804, end: 20100816
  7. BAYASPIRIN [Concomitant]
     Active Substance: ASPIRIN
     Indication: IN VITRO FERTILISATION
     Dosage: 100 MG 1 DAY
     Route: 048
     Dates: start: 20100804, end: 20100816
  8. FOLLISTIM [Suspect]
     Active Substance: FOLLITROPIN
     Indication: IN VITRO FERTILISATION
     Dosage: 225 UNDER 1000 UNIT, QD
     Route: 058
     Dates: start: 20100531, end: 20100601
  9. GANIRELIX ACETATE. [Suspect]
     Active Substance: GANIRELIX ACETATE
     Indication: PREVENTION OF PREMATURE OVULATION
     Dosage: 0.25 MG, QD
     Route: 058
     Dates: start: 20100607, end: 20100608
  10. LUTORAL (CHLORMADINONE ACETATE) [Concomitant]
     Active Substance: CHLORMADINONE ACETATE\MESTRANOL
     Indication: IN VITRO FERTILISATION
     Dosage: 6 MG 1 DAY
     Route: 048
     Dates: start: 20100804, end: 20100816

REACTIONS (2)
  - Abortion [Recovered/Resolved]
  - Exposure during pregnancy [Unknown]

NARRATIVE: CASE EVENT DATE: 20100823
